FAERS Safety Report 16764843 (Version 1)
Quarter: 2019Q3

REPORT INFORMATION
  Report Type: Spontaneous
  Country: US (occurrence: US)
  Receive Date: 20190903
  Receipt Date: 20190903
  Transmission Date: 20191005
  Serious: No
  Sender: FDA-Public Use
  Company Number: PHEH2019US036403

PATIENT
  Sex: Female

DRUGS (3)
  1. FULVESTRANT. [Concomitant]
     Active Substance: FULVESTRANT
     Indication: BREAST CANCER
     Dosage: 500 MG, UNK (ONCE EVERY TWO WEEKS)
     Route: 030
  2. PIQRAY [Suspect]
     Active Substance: ALPELISIB
     Indication: VISION BLURRED
     Dosage: 300 MG/KG, QD
     Route: 048
  3. PIQRAY [Suspect]
     Active Substance: ALPELISIB
     Indication: HYPERGLYCAEMIA

REACTIONS (1)
  - Vision blurred [Recovering/Resolving]
